FAERS Safety Report 6644826-2 (Version None)
Quarter: 2010Q1

REPORT INFORMATION
  Report Type: 
  Country: None (occurrence: None)
  Receive Date: 20100322
  Receipt Date: 20100315
  Transmission Date: 20100710
  Serious: Yes (Other)
  Sender: FDA-Public Use
  Company Number: GXKR2010GB03073

PATIENT
  Age: 67 Year
  Sex: Female

DRUGS (4)
  1. DEXAMETHASONE (NGX) [Suspect]
     Indication: VOMITING
     Dosage: 8 MG, DAILY FOR THE FIRST 4 DAYS
     Route: 065
  2. FLUOROURACIL [Suspect]
     Indication: ANAL CANCER
     Dosage: 1000 MG/M2/DAY FOR THE FIRST 4 DAYS
  3. MITOMYCIN (NGX) [Suspect]
     Indication: ANAL CANCER
     Dosage: ON DAY 1 ONLY
     Route: 042
  4. RADIOTHERAPY [Suspect]
     Indication: ANAL CANCER
     Dosage: 1.8 GY, DAILY (MON TO FRI, FOR A TOTAL PRESCRIBED DOSE OF 50.4 GY)
     Route: 065

REACTIONS (7)
  - CANDIDIASIS [None]
  - DYSPNOEA [None]
  - EPIGLOTTIC OEDEMA [None]
  - ORAL CANDIDIASIS [None]
  - SKIN EXFOLIATION [None]
  - STRIDOR [None]
  - TRACHEOSTOMY [None]
